FAERS Safety Report 6855221-5 (Version None)
Quarter: 2010Q3

REPORT INFORMATION
  Report Type: 
  Country: None (occurrence: None)
  Receive Date: 20100719
  Receipt Date: 20100628
  Transmission Date: 20110219
  Serious: Yes (Other)
  Sender: FDA-Public Use
  Company Number: US-ASTRAZENECA-2007UW01716

PATIENT
  Age: 16286 Day
  Sex: Male
  Weight: 91.6 kg

DRUGS (24)
  1. SEROQUEL [Suspect]
     Indication: SLEEP DISORDER
     Dosage: 50-400 MG
     Route: 048
     Dates: start: 20020801, end: 20070920
  2. SEROQUEL [Suspect]
     Indication: SCHIZOAFFECTIVE DISORDER
     Dosage: 50-400 MG
     Route: 048
     Dates: start: 20020801, end: 20070920
  3. SEROQUEL [Suspect]
     Indication: BIPOLAR DISORDER
     Dosage: 50-400 MG
     Route: 048
     Dates: start: 20020801, end: 20070920
  4. SEROQUEL [Suspect]
     Indication: DEPRESSION
     Dosage: 50-400 MG
     Route: 048
     Dates: start: 20020801, end: 20070920
  5. SEROQUEL [Suspect]
     Route: 048
     Dates: start: 20030301
  6. SEROQUEL [Suspect]
     Route: 048
     Dates: start: 20030301
  7. SEROQUEL [Suspect]
     Route: 048
     Dates: start: 20030301
  8. SEROQUEL [Suspect]
     Route: 048
     Dates: start: 20030301
  9. RISPERDAL [Concomitant]
     Indication: SCHIZOAFFECTIVE DISORDER
     Dosage: 2 -3 MG
     Dates: start: 20020222, end: 20021015
  10. RISPERDAL [Concomitant]
     Indication: BIPOLAR DISORDER
     Dosage: 2 -3 MG
     Dates: start: 20020222, end: 20021015
  11. RISPERDAL [Concomitant]
     Indication: DEPRESSION
     Dosage: 2 -3 MG
     Dates: start: 20020222, end: 20021015
  12. ZYPREXA [Concomitant]
     Indication: SCHIZOAFFECTIVE DISORDER
     Dosage: 15-20 MG
     Dates: start: 19990610, end: 20000103
  13. ZYPREXA [Concomitant]
     Indication: BIPOLAR DISORDER
     Dosage: 15-20 MG
     Dates: start: 19990610, end: 20000103
  14. ZYPREXA [Concomitant]
     Indication: DEPRESSION
     Dosage: 15-20 MG
     Dates: start: 19990610, end: 20000103
  15. TRAZODONE HYDROCHLORIDE [Concomitant]
     Dosage: 50-150 MG
     Dates: start: 20020101, end: 20030101
  16. GEODON [Concomitant]
     Dates: start: 20020101
  17. NAVANE [Concomitant]
     Dates: start: 20020101
  18. BUSPAR [Concomitant]
     Dates: start: 20030101
  19. EFFEXOR XR [Concomitant]
     Dosage: 75 MG
     Dates: start: 20070101, end: 20090101
  20. PAXIL [Concomitant]
     Dosage: 20-40 MG
     Dates: start: 20020101
  21. PROZAC [Concomitant]
     Dosage: 30 MG
     Dates: start: 20060101
  22. REMERON [Concomitant]
     Dosage: 30 MG
     Dates: start: 20030101
  23. WELLBUTRIN [Concomitant]
     Dosage: 50-250 MG
     Dates: start: 20020101, end: 20030101
  24. ZOLOFT [Concomitant]
     Dates: start: 20030101

REACTIONS (7)
  - ARTHROPOD BITE [None]
  - BACK INJURY [None]
  - CONVULSION [None]
  - HEAD INJURY [None]
  - NECK INJURY [None]
  - OBESITY [None]
  - TYPE 2 DIABETES MELLITUS [None]
